FAERS Safety Report 16589711 (Version 1)
Quarter: 2019Q3

REPORT INFORMATION
  Report Type: Other
  Country: US (occurrence: US)
  Receive Date: 20190718
  Receipt Date: 20190718
  Transmission Date: 20191004
  Serious: No
  Sender: FDA-Public Use
  Company Number: US-SWEDISH ORPHAN BIOVITRUM-2019US0762

PATIENT
  Sex: Male

DRUGS (3)
  1. KINERET [Suspect]
     Active Substance: ANAKINRA
     Indication: ACUTE FEBRILE NEUTROPHILIC DERMATOSIS
     Route: 058
     Dates: start: 20190315
  2. PREDNISONE. [Concomitant]
     Active Substance: PREDNISONE
  3. PROCRET [Concomitant]

REACTIONS (10)
  - Pruritus [Unknown]
  - Urticaria [Unknown]
  - Injection site mass [Unknown]
  - Skin warm [Unknown]
  - Pyrexia [Unknown]
  - Swelling [Unknown]
  - Injection site pain [Unknown]
  - Dry skin [Unknown]
  - Injection site reaction [Unknown]
  - Erythema [Unknown]
